FAERS Safety Report 23979781 (Version 2)
Quarter: 2024Q3

REPORT INFORMATION
  Report Type: Spontaneous
  Country: JP (occurrence: JP)
  Receive Date: 20240616
  Receipt Date: 20240801
  Transmission Date: 20241017
  Serious: Yes (Hospitalization)
  Sender: NOVARTIS
  Company Number: JP-002147023-NVSJ2024JP007054

PATIENT
  Age: 51 Year
  Sex: Male

DRUGS (5)
  1. ENTRESTO [Suspect]
     Active Substance: SACUBITRIL\VALSARTAN
     Indication: Hypertension
     Dosage: 200 MG
     Route: 048
     Dates: start: 20240327, end: 20240412
  2. CARVEDILOL [Suspect]
     Active Substance: CARVEDILOL
     Indication: Hypertension
     Dosage: 10 MG
     Route: 048
     Dates: start: 20240327, end: 20240412
  3. NICARDIPINE [Concomitant]
     Active Substance: NICARDIPINE
     Indication: Hypertension
     Dosage: UNK
     Route: 042
     Dates: start: 20240327, end: 20240402
  4. AMLODIPINE [Concomitant]
     Active Substance: AMLODIPINE BESYLATE
     Indication: Hypertension
     Dosage: 5 MG
     Route: 048
     Dates: start: 20240327, end: 20240331
  5. AMLODIPINE [Concomitant]
     Active Substance: AMLODIPINE BESYLATE
     Dosage: 10 MG
     Route: 048
     Dates: start: 20240401, end: 20240412

REACTIONS (4)
  - Blood pressure systolic decreased [Recovering/Resolving]
  - Cerebral haematoma [Recovering/Resolving]
  - Concomitant disease aggravated [Recovering/Resolving]
  - Cerebral ventricular rupture [Recovering/Resolving]

NARRATIVE: CASE EVENT DATE: 20240301
